FAERS Safety Report 13464961 (Version 1)
Quarter: 2017Q2

REPORT INFORMATION
  Report Type: Spontaneous
  Country: GB (occurrence: GB)
  Receive Date: 20170420
  Receipt Date: 20170420
  Transmission Date: 20170830
  Serious: Yes (Other)
  Sender: FDA-Public Use
  Company Number: GB-009507513-1704GBR008846

PATIENT
  Age: 10 Year
  Sex: Male

DRUGS (3)
  1. AMBISOME [Concomitant]
     Active Substance: AMPHOTERICIN B
  2. POSACONAZOLE [Suspect]
     Active Substance: POSACONAZOLE
     Indication: ANTIFUNGAL PROPHYLAXIS
     Dosage: 100 MG, FOUR TIMES A DAY
     Route: 048
  3. VINCRISTINE [Concomitant]
     Active Substance: VINCRISTINE

REACTIONS (1)
  - Pancreatitis acute [Recovering/Resolving]
